FAERS Safety Report 18674298 (Version 1)
Quarter: 2020Q4

REPORT INFORMATION
  Report Type: Spontaneous
  Country: US (occurrence: US)
  Receive Date: 20201229
  Receipt Date: 20201229
  Transmission Date: 20210114
  Serious: Yes (Hospitalization, Other)
  Sender: FDA-Public Use
  Company Number: US-BIOVITRUM-2020US7972

PATIENT
  Age: 10 Month
  Sex: Female
  Weight: 7 kg

DRUGS (31)
  1. MIRALAX [Concomitant]
     Active Substance: POLYETHYLENE GLYCOL 3350
     Dosage: DOSE POWDER,
  2. TOBRAMYCIN SULFATE 40 MG/ML VIAL [Concomitant]
  3. SPIRONOLACTONE 100 % POWDER [Concomitant]
  4. MUPIROCIN 2 % OINT.(GM) [Concomitant]
  5. OMEPRAZOLE-SODIUM BICARBONATE [Concomitant]
     Active Substance: OMEPRAZOLE\SODIUM BICARBONATE
  6. METOCLOPRAMIDE HCL [Concomitant]
     Active Substance: METOCLOPRAMIDE HYDROCHLORIDE
  7. ACETAZOLAMIDE SODIUM 500 MG VIAL [Concomitant]
  8. SIMETHICONE (DIMETHICONE) [Concomitant]
     Active Substance: DIMETHICONE
     Dosage: 40MG/0.6ML DROPS SUSP,
  9. SILDENAFIL CITRATE. [Concomitant]
     Active Substance: SILDENAFIL CITRATE
  10. GLYCERIN PEDIATRIC SUPP.RECT [Concomitant]
  11. MCT OIL 7.7KCAL/ML OIL [Concomitant]
  12. BUDESONIDE 0.25MG/2ML AMPUL-NEB [Concomitant]
  13. MULTIVITAMIN-IRON-FLUORIDE [Concomitant]
  14. SYNAGIS [Suspect]
     Active Substance: PALIVIZUMAB
     Indication: PULMONARY ARTERIAL HYPERTENSION
     Dosage: 50MG/0.5ML VL LIQUID
     Route: 030
  15. SILDENAFIL. [Concomitant]
     Active Substance: SILDENAFIL
  16. POTASSIUM CHLORIDE-0.9% NACL [Concomitant]
  17. MORPHINE SULFATE-0.9% NACL [Concomitant]
  18. ACETAMINOPHEN. [Concomitant]
     Active Substance: ACETAMINOPHEN
     Dosage: 5ML LIQUID
  19. SODIUM CHLORIDE. [Concomitant]
     Active Substance: SODIUM CHLORIDE
     Dosage: 2.5 MEQ/ML VIAL?0.9 % VIAL-NEB
  20. LORAZEPAM 2 MG/ML CARTRIDGE [Concomitant]
  21. ACETAMINOPHEN. [Concomitant]
     Active Substance: ACETAMINOPHEN
     Dosage: SUPP.RECT
  22. TRIAMCINOLONE ACETONIDE. [Concomitant]
     Active Substance: TRIAMCINOLONE ACETONIDE
  23. POTASSIUM CHLORIDE-NACL [Concomitant]
  24. FUROSEMIDE 10 MG/ML SOLUTION [Concomitant]
  25. ERYTHROMYCIN ETHYLSUCCINATE. [Concomitant]
     Active Substance: ERYTHROMYCIN ETHYLSUCCINATE
  26. OXYGEN. [Concomitant]
     Active Substance: OXYGEN
  27. ALBUTEROL SULFATE. [Concomitant]
     Active Substance: ALBUTEROL SULFATE
  28. DEXTROSE 10%-0.2% NACL [Concomitant]
  29. MELATONIN 1 MG/ML LIQUID [Concomitant]
  30. IPRATROPIUM BROMIDE. [Concomitant]
     Active Substance: IPRATROPIUM BROMIDE
  31. CLONIDINE HCL 1000MCG/10 VIAL [Concomitant]

REACTIONS (2)
  - Off label use [Unknown]
  - Tracheostomy infection [Recovered/Resolved]

NARRATIVE: CASE EVENT DATE: 20201128
